FAERS Safety Report 10026113 (Version 1)
Quarter: 2014Q1

REPORT INFORMATION
  Report Type: Spontaneous
  Country: DE (occurrence: DE)
  Receive Date: 20140320
  Receipt Date: 20140320
  Transmission Date: 20141002
  Serious: Yes (Other)
  Sender: FDA-Public Use
  Company Number: DE-009507513-1403DEU008178

PATIENT
  Sex: Female

DRUGS (3)
  1. LORZAAR PLUS 50/12,5 MG FILMTABLETTEN [Suspect]
     Indication: ARRHYTHMIA
     Dosage: HALF A TABLET DAILY,  TOTAL DAILY DOSE 25/6.25MG
     Route: 048
     Dates: start: 2007
  2. CARVEDILOL [Concomitant]
  3. ASPIRIN [Concomitant]

REACTIONS (7)
  - Chapped lips [Not Recovered/Not Resolved]
  - Lip dry [Not Recovered/Not Resolved]
  - Oedema mouth [Not Recovered/Not Resolved]
  - Lip swelling [Not Recovered/Not Resolved]
  - Pruritus [Not Recovered/Not Resolved]
  - Underdose [Unknown]
  - Drug administration error [Unknown]
